FAERS Safety Report 6822045-4 (Version None)
Quarter: 2010Q3

REPORT INFORMATION
  Report Type: 
  Country: None (occurrence: None)
  Receive Date: 20100708
  Receipt Date: 20100628
  Transmission Date: 20110219
  Serious: Yes (Hospitalization)
  Sender: FDA-Public Use
  Company Number: FR-EISAI INC.-E3810-03920-SPO-FR

PATIENT
  Sex: Male

DRUGS (2)
  1. PARIET (RABEPRAZOLE) [Suspect]
     Indication: PROPHYLAXIS
     Route: 048
     Dates: start: 20100114, end: 20100121
  2. ZOVIRAX [Concomitant]
     Dates: start: 20091201

REACTIONS (2)
  - DERMATITIS BULLOUS [None]
  - MUCOSAL EROSION [None]
